FAERS Safety Report 7848632-2 (Version None)
Quarter: 2011Q4

REPORT INFORMATION
  Report Type: 
  Country: None (occurrence: None)
  Receive Date: 20111026
  Receipt Date: 20111020
  Transmission Date: 20120403
  Serious: Yes (Hospitalization)
  Sender: FDA-Public Use
  Company Number: US-BIOGENIDEC-2011BI037934

PATIENT
  Age: 56 Year
  Sex: Female

DRUGS (2)
  1. AVONEX [Concomitant]
     Indication: MULTIPLE SCLEROSIS
     Route: 030
     Dates: start: 20010108
  2. TYSABRI [Suspect]
     Indication: MULTIPLE SCLEROSIS
     Route: 042
     Dates: start: 20110721

REACTIONS (6)
  - HALLUCINATION [None]
  - DRY THROAT [None]
  - APHASIA [None]
  - VISION BLURRED [None]
  - SENSORY DISTURBANCE [None]
  - TREMOR [None]
